FAERS Safety Report 4392480-5 (Version None)
Quarter: 2004Q3

REPORT INFORMATION
  Report Type: 
  Country: None (occurrence: None)
  Receive Date: 20040702
  Receipt Date: 20040323
  Transmission Date: 20050211
  Serious: Yes (Other)
  Sender: FDA-Public Use
  Company Number: 2004UW03324

PATIENT
  Age: 30 Year
  Sex: Female
  Weight: 65.318 kg

DRUGS (3)
  1. CRESTOR [Suspect]
     Indication: HYPERLIPIDAEMIA
     Dosage: 10 MG QD PO
     Route: 048
     Dates: start: 20040203, end: 20040218
  2. ALLEGRA [Concomitant]
  3. ORAL CONTRACEPTIVES [Concomitant]

REACTIONS (1)
  - MUSCLE CONTRACTIONS INVOLUNTARY [None]
